FAERS Safety Report 4469243-5 (Version None)
Quarter: 2004Q4

REPORT INFORMATION
  Report Type: 
  Country: None (occurrence: None)
  Receive Date: 20041005
  Receipt Date: 20041005
  Transmission Date: 20050328
  Serious: Yes (Life-Threatening, Hospitalization, Disabling)
  Sender: FDA-Public Use
  Company Number: None

PATIENT
  Age: 60 Year
  Sex: Male
  Weight: 108.8633 kg

DRUGS (1)
  1. VIOXX [Suspect]
     Indication: ARTHRITIS
     Dosage: 1 TAB DAILY ORAL
     Route: 048
     Dates: start: 20030916, end: 20040716

REACTIONS (4)
  - ARTERIAL OCCLUSIVE DISEASE [None]
  - CORONARY ARTERY REOCCLUSION [None]
  - MYOCARDIAL INFARCTION [None]
  - THROMBOSIS [None]
